FAERS Safety Report 7770352-3 (Version None)
Quarter: 2011Q3

REPORT INFORMATION
  Report Type: 
  Country: None (occurrence: None)
  Receive Date: 20110922
  Receipt Date: 20100824
  Transmission Date: 20111222
  Serious: No
  Sender: FDA-Public Use
  Company Number: US-ASTRAZENECA-2007UW27704

PATIENT
  Age: 9960 Day
  Sex: Female
  Weight: 150.6 kg

DRUGS (12)
  1. SEROQUEL [Suspect]
     Indication: ANXIETY
     Route: 048
     Dates: start: 20060901
  2. SEROQUEL [Suspect]
     Route: 048
     Dates: start: 20061130, end: 20071003
  3. RISPERDAL [Concomitant]
     Indication: SLEEP DISORDER
     Dates: start: 20060101, end: 20060101
  4. LEXAPRO [Concomitant]
     Indication: DEPRESSION
     Dates: start: 20040101
  5. METFORMIN [Concomitant]
  6. KLONOPIN [Concomitant]
     Indication: DEPRESSION
     Dates: start: 20040101
  7. SEROQUEL [Suspect]
     Indication: DEPRESSION
     Route: 048
     Dates: start: 20060901
  8. FORPAMET [Concomitant]
  9. CLOZAPINE [Concomitant]
     Dosage: 1 MG - 5MG
  10. SEROQUEL [Suspect]
     Route: 048
     Dates: start: 20061130, end: 20071003
  11. SEROQUEL [Suspect]
     Indication: SLEEP DISORDER
     Route: 048
     Dates: start: 20060901
  12. SEROQUEL [Suspect]
     Route: 048
     Dates: start: 20061130, end: 20071003

REACTIONS (3)
  - TYPE 2 DIABETES MELLITUS [None]
  - DIABETIC COMPLICATION [None]
  - BACK DISORDER [None]
